FAERS Safety Report 9182183 (Version 1)
Quarter: 2013Q1

REPORT INFORMATION
  Report Type: Spontaneous
  Country: US (occurrence: None)
  Receive Date: 20130321
  Receipt Date: 20130321
  Transmission Date: 20140127
  Serious: Yes (Hospitalization)
  Sender: FDA-Public Use
  Company Number: None

PATIENT
  Age: 52 Year
  Sex: Female
  Weight: 86.2 kg

DRUGS (5)
  1. DONEPEZIL [Suspect]
     Dosage: 1X DAY
     Route: 048
     Dates: start: 20130125, end: 20130220
  2. GEMFIBROZIDE [Concomitant]
  3. GLIPIZIDE [Concomitant]
  4. LISINOPRIL [Concomitant]
  5. METFORMIN [Concomitant]

REACTIONS (1)
  - Chest pain [None]
